FAERS Safety Report 4618497-0 (Version None)
Quarter: 2005Q2

REPORT INFORMATION
  Report Type: 
  Country: None (occurrence: None)
  Receive Date: 20050311
  Receipt Date: 20041122
  Transmission Date: 20051028
  Serious: No
  Sender: FDA-Public Use
  Company Number: 2004-BP-10639BP

PATIENT
  Age: 77 Year
  Sex: Female

DRUGS (9)
  1. SPIRIVA [Suspect]
     Indication: BRONCHITIS CHRONIC
     Dosage: 18 MCG (18 MCG), IH
     Route: 055
     Dates: start: 20041014, end: 20041017
  2. SPIRIVA [Suspect]
     Indication: CHRONIC OBSTRUCTIVE PULMONARY DISEASE
     Dosage: 18 MCG (18 MCG), IH
     Route: 055
     Dates: start: 20041014, end: 20041017
  3. SPIRIVA [Suspect]
  4. CALCIUM GLUCONATE [Concomitant]
  5. MAGNESIUM [Concomitant]
  6. ZINC [Concomitant]
  7. VITAMIN B12 [Concomitant]
  8. VITAMIN D [Concomitant]
  9. TUMS (CALCIUM CARBONATE) [Concomitant]

REACTIONS (3)
  - ARTHRALGIA [None]
  - LETHARGY [None]
  - PAIN IN EXTREMITY [None]
